FAERS Safety Report 9405518 (Version 1)
Quarter: 2013Q3

REPORT INFORMATION
  Report Type: Spontaneous
  Country: TR (occurrence: TR)
  Receive Date: 20130717
  Receipt Date: 20130717
  Transmission Date: 20140515
  Serious: Yes (Other)
  Sender: FDA-Public Use
  Company Number: TR-MERCK-1307TUR008281

PATIENT
  Age: 70 Year
  Sex: Female

DRUGS (2)
  1. ALENDRONATE SODIUM [Suspect]
     Indication: OSTEOPOROSIS
     Dosage: 10 MG, DAY
     Route: 048
  2. ALENDRONATE SODIUM [Suspect]
     Dosage: 70 MG, QW
     Route: 048

REACTIONS (1)
  - Femur fracture [Recovered/Resolved]
